FAERS Safety Report 15851874 (Version 1)
Quarter: 2019Q1

REPORT INFORMATION
  Report Type: Spontaneous
  Country: US (occurrence: US)
  Receive Date: 20190122
  Receipt Date: 20190122
  Transmission Date: 20190417
  Serious: No
  Sender: FDA-Public Use
  Company Number: US-BAUSCH-BL-2017-032159

PATIENT
  Age: 59 Year
  Sex: Female
  Weight: 58.57 kg

DRUGS (2)
  1. ALAWAY [Suspect]
     Active Substance: KETOTIFEN FUMARATE
     Indication: HYPERSENSITIVITY
     Dosage: IN BOTH EYE
     Route: 047
     Dates: start: 20171121, end: 20171121
  2. LEVOTHYROXINE. [Concomitant]
     Active Substance: LEVOTHYROXINE
     Indication: PRODUCT USED FOR UNKNOWN INDICATION

REACTIONS (3)
  - Eye irritation [Recovering/Resolving]
  - Photophobia [Not Recovered/Not Resolved]
  - Lacrimation increased [Recovering/Resolving]

NARRATIVE: CASE EVENT DATE: 20171121
